FAERS Safety Report 15930071 (Version 3)
Quarter: 2019Q1

REPORT INFORMATION
  Report Type: Report from Study
  Country: None (occurrence: CA)
  Receive Date: 20190206
  Receipt Date: 20190221
  Transmission Date: 20190417
  Serious: Yes (Other)
  Sender: FDA-Public Use
  Company Number: CA-ABBVIE-18K-028-2297819-00

PATIENT
  Sex: Female

DRUGS (2)
  1. HUMIRA [Suspect]
     Active Substance: ADALIMUMAB
     Indication: RHEUMATOID ARTHRITIS
     Route: 058
     Dates: start: 20140113, end: 2018
  2. HUMIRA [Suspect]
     Active Substance: ADALIMUMAB
     Route: 058
     Dates: start: 201901

REACTIONS (6)
  - Blister [Unknown]
  - Influenza [Unknown]
  - Dermal cyst [Not Recovered/Not Resolved]
  - Post procedural haemorrhage [Unknown]
  - Rash pustular [Unknown]
  - Post procedural infection [Unknown]

NARRATIVE: CASE EVENT DATE: 2014
